FAERS Safety Report 21115941 (Version 1)
Quarter: 2022Q3

REPORT INFORMATION
  Report Type: Spontaneous
  Country: GB (occurrence: GB)
  Receive Date: 20220721
  Receipt Date: 20220721
  Transmission Date: 20221026
  Serious: Yes (Other)
  Sender: FDA-Public Use
  Company Number: GB-CELLTRION INC.-2022GB010094

PATIENT

DRUGS (1)
  1. INFLIXIMAB [Suspect]
     Active Substance: INFLIXIMAB
     Indication: Crohn^s disease
     Dosage: 120 MG, EVERY OTHER WEEK (EOW/FORTNIGHTLY)
     Route: 058

REACTIONS (3)
  - COVID-19 [Unknown]
  - Injection site erythema [Unknown]
  - Treatment delayed [Unknown]
